FAERS Safety Report 20145631 (Version 1)
Quarter: 2021Q4

REPORT INFORMATION
  Report Type: Spontaneous
  Country: US (occurrence: None)
  Receive Date: 20211202
  Receipt Date: 20211202
  Transmission Date: 20220303
  Serious: No
  Sender: FDA-Public Use
  Company Number: None

PATIENT

DRUGS (2)
  1. TRALEMENT [Suspect]
     Active Substance: CUPRIC SULFATE\MAGNESIUM SULFATE MONOHYDRATE\SELENIOUS ACID\ZINC SULFATE HEPTAHYDRATE
     Route: 042
  2. MULTRYS [Suspect]
     Active Substance: CUPRIC SULFATE\MANGANESE SULFATE\SELENIOUS ACID\ZINC SULFATE
     Route: 042

REACTIONS (3)
  - Product label confusion [None]
  - Dose calculation error [None]
  - Product use issue [None]
